FAERS Safety Report 10495720 (Version 1)
Quarter: 2014Q4

REPORT INFORMATION
  Report Type: Other
  Country: GB (occurrence: GB)
  Receive Date: 20141003
  Receipt Date: 20141003
  Transmission Date: 20150528
  Serious: Yes (Disabling)
  Sender: FDA-Public Use
  Company Number: GB-MYLANLABS-2014M1005544

PATIENT

DRUGS (16)
  1. DOXAZOSIN [Suspect]
     Active Substance: DOXAZOSIN\DOXAZOSIN MESYLATE
     Dosage: 2 MG, QD
     Route: 048
  2. PLAVIX [Concomitant]
     Active Substance: CLOPIDOGREL BISULFATE
     Dosage: 75 MG, QD
  3. ROSUVASTATIN [Concomitant]
     Active Substance: ROSUVASTATIN
  4. LATANOPROST. [Concomitant]
     Active Substance: LATANOPROST
     Dosage: 1 DF, QD (1 DROP INTO THE AFFECTED EYE(S) ONCE IN THE EVENING)
  5. BISOPROLOL [Concomitant]
     Active Substance: BISOPROLOL
  6. COCODAMOL [Concomitant]
     Active Substance: ACETAMINOPHEN\CODEINE PHOSPHATE
     Dosage: 1-2 CAPSULES UP TO 4 TIMES DAILY
  7. GAVISCON [Concomitant]
     Active Substance: ALUMINUM HYDROXIDE\MAGNESIUM CARBONATE
     Dosage: 1-2 AS REQUIRED
  8. AMITRIPTYLINE [Concomitant]
     Active Substance: AMITRIPTYLINE
     Dosage: NIGHT
  9. HUMALOG [Concomitant]
     Active Substance: INSULIN LISPRO
     Dosage: AS DIRECTED
  10. METFORMIN [Concomitant]
     Active Substance: METFORMIN HYDROCHLORIDE
     Dosage: 30 MG, QD
  11. CANDESARTAN [Concomitant]
     Active Substance: CANDESARTAN
  12. RANITIDINE [Concomitant]
     Active Substance: RANITIDINE\RANITIDINE HYDROCHLORIDE
     Dosage: 40 MG, QD
  13. BIMATOPROST. [Concomitant]
     Active Substance: BIMATOPROST
     Dosage: 1 DROP INTO THE AFFECTED EYE(S) ONCE IN THE EVENING
  14. DILZEM SR [Concomitant]
     Dosage: 180 MG, BID
  15. POLYTAR PLUS [Concomitant]
     Dosage: AS NECESSARY
  16. ISOSORBIDE MONONITRATE. [Concomitant]
     Active Substance: ISOSORBIDE MONONITRATE

REACTIONS (4)
  - Sputum discoloured [Recovering/Resolving]
  - Lung disorder [Recovering/Resolving]
  - Increased bronchial secretion [Recovering/Resolving]
  - Oesophagitis [Recovering/Resolving]
